FAERS Safety Report 7541312-2 (Version None)
Quarter: 2011Q2

REPORT INFORMATION
  Report Type: 
  Country: None (occurrence: None)
  Receive Date: 20110611
  Receipt Date: 20110602
  Transmission Date: 20111010
  Serious: Yes (Hospitalization)
  Sender: FDA-Public Use
  Company Number: US-AMGEN-USASP2011028717

PATIENT
  Age: 69 Year
  Sex: Female

DRUGS (1)
  1. ENBREL [Suspect]
     Indication: RHEUMATOID ARTHRITIS
     Dosage: 50 MG, QWK
     Dates: start: 20061011, end: 20080520

REACTIONS (4)
  - OSTEOARTHRITIS [None]
  - RHEUMATOID ARTHRITIS [None]
  - FALL [None]
  - PELVIC FRACTURE [None]
